FAERS Safety Report 11758234 (Version 2)
Quarter: 2015Q4

REPORT INFORMATION
  Report Type: Report from Study
  Country: US (occurrence: US)
  Receive Date: 20151120
  Receipt Date: 20151221
  Transmission Date: 20160304
  Serious: Yes (Other)
  Sender: FDA-Public Use
  Company Number: US-SA-2015SA189025

PATIENT
  Age: 74 Year
  Sex: Male

DRUGS (4)
  1. PRALUENT [Suspect]
     Active Substance: ALIROCUMAB
     Indication: TYPE V HYPERLIPIDAEMIA
     Dosage: FORM- AUTO PEN?ROUTE- UNDER THE SKIN
     Route: 058
     Dates: start: 20150903
  2. ALIROCUMAB PREFILLED PEN [Concomitant]
     Active Substance: ALIROCUMAB
     Indication: CORONARY ANGIOPLASTY
     Dates: start: 20150903
  3. PRALUENT [Suspect]
     Active Substance: ALIROCUMAB
     Indication: CORONARY ANGIOPLASTY
     Dosage: FORM- AUTO PEN?ROUTE- UNDER THE SKIN
     Route: 058
     Dates: start: 20150903
  4. ALIROCUMAB PREFILLED PEN [Concomitant]
     Active Substance: ALIROCUMAB
     Indication: TYPE V HYPERLIPIDAEMIA
     Dates: start: 20150903

REACTIONS (2)
  - Glycosylated haemoglobin decreased [Unknown]
  - Therapeutic response unexpected [Unknown]

NARRATIVE: CASE EVENT DATE: 2015
